FAERS Safety Report 20348491 (Version 1)
Quarter: 2022Q1

REPORT INFORMATION
  Report Type: Other
  Country: None (occurrence: NL)
  Receive Date: 20220119
  Receipt Date: 20220119
  Transmission Date: 20220423
  Serious: Yes (Death, Hospitalization)
  Sender: FDA-Public Use
  Company Number: NL-Appco Pharma LLC-2124069

PATIENT
  Age: 16 Year
  Sex: Male

DRUGS (2)
  1. SILDENAFIL [Suspect]
     Active Substance: SILDENAFIL
     Indication: Product used for unknown indication
     Route: 065
  2. BOSENTAN [Suspect]
     Active Substance: BOSENTAN
     Route: 065

REACTIONS (2)
  - Drug ineffective [Fatal]
  - Disease progression [Fatal]
